FAERS Safety Report 14249231 (Version 7)
Quarter: 2018Q3

REPORT INFORMATION
  Report Type: Spontaneous
  Country: CA (occurrence: CA)
  Receive Date: 20171204
  Receipt Date: 20180716
  Transmission Date: 20181010
  Serious: Yes (Other)
  Sender: FDA-Public Use
  Company Number: CA-PFIZER INC-2017333742

PATIENT
  Age: 59 Year
  Sex: Female

DRUGS (1)
  1. XELJANZ [Suspect]
     Active Substance: TOFACITINIB CITRATE
     Indication: RHEUMATOID ARTHRITIS
     Dosage: 5 MG, TWICE A DAY
     Route: 048
     Dates: start: 20170401, end: 201711

REACTIONS (20)
  - Bipolar disorder [Unknown]
  - Neuralgia [Unknown]
  - Foot deformity [Unknown]
  - Joint swelling [Unknown]
  - Pain in extremity [Unknown]
  - Diabetes mellitus [Unknown]
  - Drug effect delayed [Unknown]
  - Peripheral swelling [Unknown]
  - Road traffic accident [Unknown]
  - Bone pain [Unknown]
  - Arthralgia [Unknown]
  - Drug effect incomplete [Unknown]
  - Back pain [Not Recovered/Not Resolved]
  - Dysstasia [Unknown]
  - Accident at work [Unknown]
  - Pain [Unknown]
  - Loss of personal independence in daily activities [Unknown]
  - Tremor [Unknown]
  - Fibromyalgia [Unknown]
  - Burning sensation [Unknown]

NARRATIVE: CASE EVENT DATE: 2017
